FAERS Safety Report 15562350 (Version 1)
Quarter: 2018Q4

REPORT INFORMATION
  Report Type: Spontaneous
  Country: US (occurrence: US)
  Receive Date: 20181029
  Receipt Date: 20181029
  Transmission Date: 20190205
  Serious: Yes (Hospitalization)
  Sender: FDA-Public Use
  Company Number: PHEH2018US045454

PATIENT
  Age: 31 Year
  Sex: Female

DRUGS (2)
  1. ENTRESTO [Suspect]
     Active Substance: SACUBITRIL\VALSARTAN
     Indication: CARDIAC FAILURE
     Dosage: 50 MG (24/26 MG), BID
     Route: 065
  2. ENTRESTO [Suspect]
     Active Substance: SACUBITRIL\VALSARTAN
     Dosage: 50 MG (49/51 MG), BID
     Route: 065

REACTIONS (8)
  - Neurodegenerative disorder [Recovered/Resolved]
  - Delusion [Recovered/Resolved]
  - Confabulation [Recovered/Resolved]
  - Paranoia [Recovered/Resolved]
  - Restlessness [Recovered/Resolved]
  - Cerebral ventricle dilatation [Recovered/Resolved]
  - Hallucination [Recovered/Resolved]
  - Insomnia [Recovered/Resolved]
